FAERS Safety Report 14801048 (Version 2)
Quarter: 2020Q1

REPORT INFORMATION
  Report Type: Report from Study
  Country: JP (occurrence: JP)
  Receive Date: 20180424
  Receipt Date: 20200217
  Transmission Date: 20200409
  Serious: Yes (Other)
  Sender: FDA-Public Use
  Company Number: PHJP2018JP003167

PATIENT
  Age: 28 Year
  Sex: Female

DRUGS (48)
  1. SIGNIFOR LAR [Suspect]
     Active Substance: PASIREOTIDE PAMOATE
     Dosage: 20 MG, UNK
     Route: 030
     Dates: start: 20171221
  2. ACTOS [Concomitant]
     Active Substance: PIOGLITAZONE HYDROCHLORIDE
     Indication: DIABETES MELLITUS
     Dosage: 30 MG, UNK
     Route: 048
     Dates: end: 20170316
  3. DEBERZA [Concomitant]
     Active Substance: TOFOGLIFLOZIN
     Indication: DIABETES MELLITUS
     Dosage: 20 MG, UNK
     Route: 048
     Dates: end: 20170511
  4. SIGNIFOR LAR [Suspect]
     Active Substance: PASIREOTIDE PAMOATE
     Dosage: 20 MG, UNK
     Route: 030
     Dates: start: 20180413
  5. SIGNIFOR LAR [Suspect]
     Active Substance: PASIREOTIDE PAMOATE
     Dosage: 20 MG, UNK
     Route: 030
     Dates: start: 20190412
  6. SIGNIFOR LAR [Suspect]
     Active Substance: PASIREOTIDE PAMOATE
     Dosage: 20 MG, UNK
     Route: 030
     Dates: start: 20200117
  7. JANUVIA [Concomitant]
     Active Substance: SITAGLIPTIN PHOSPHATE
     Indication: DIABETES MELLITUS
     Dosage: 50 MG, UNK
     Route: 048
     Dates: end: 20170316
  8. DEBERZA [Concomitant]
     Active Substance: TOFOGLIFLOZIN
     Dosage: 20 MG
     Route: 048
     Dates: start: 20181116
  9. SIGNIFOR LAR [Suspect]
     Active Substance: PASIREOTIDE PAMOATE
     Dosage: 20 MG, UNK
     Route: 030
     Dates: start: 20170915
  10. SIGNIFOR LAR [Suspect]
     Active Substance: PASIREOTIDE PAMOATE
     Dosage: 20 MG, UNK
     Route: 030
     Dates: start: 20171117
  11. SIGNIFOR LAR [Suspect]
     Active Substance: PASIREOTIDE PAMOATE
     Dosage: 20 MG, UNK
     Route: 030
     Dates: start: 20180817
  12. SIGNIFOR LAR [Suspect]
     Active Substance: PASIREOTIDE PAMOATE
     Dosage: 20 MG, UNK
     Route: 030
     Dates: start: 20181116
  13. SIGNIFOR LAR [Suspect]
     Active Substance: PASIREOTIDE PAMOATE
     Dosage: 20 MG, UNK
     Route: 030
     Dates: start: 20190315
  14. SIGNIFOR LAR [Suspect]
     Active Substance: PASIREOTIDE PAMOATE
     Dosage: 20 MG, UNK
     Route: 030
     Dates: start: 20191011
  15. SIGNIFOR LAR [Suspect]
     Active Substance: PASIREOTIDE PAMOATE
     Dosage: 20 MG, UNK
     Route: 030
     Dates: start: 20171013
  16. SIGNIFOR LAR [Suspect]
     Active Substance: PASIREOTIDE PAMOATE
     Dosage: 20 MG, UNK
     Route: 030
     Dates: start: 20190118
  17. SIGNIFOR LAR [Suspect]
     Active Substance: PASIREOTIDE PAMOATE
     Dosage: 20 MG, UNK
     Route: 030
     Dates: start: 20190215
  18. METFORMIN [Concomitant]
     Active Substance: METFORMIN HYDROCHLORIDE
     Indication: DIABETES MELLITUS
     Dosage: 1000 MG, UNK
     Route: 048
     Dates: end: 20170316
  19. LIOVEL [Concomitant]
     Active Substance: ALOGLIPTIN BENZOATE\PIOGLITAZONE HYDROCHLORIDE
     Indication: DIABETES MELLITUS
     Dosage: 40 MG, UNK
     Route: 048
     Dates: start: 20170317, end: 20180315
  20. PROGESTON [Concomitant]
     Active Substance: MEDROXYPROGESTERONE ACETATE
     Indication: ACROMEGALY
     Dosage: 10 MG, UNK
     Route: 048
  21. SIGNIFOR LAR [Suspect]
     Active Substance: PASIREOTIDE PAMOATE
     Dosage: 20 MG, UNK
     Route: 030
     Dates: start: 20180914
  22. SIGNIFOR LAR [Suspect]
     Active Substance: PASIREOTIDE PAMOATE
     Dosage: 20 MG, UNK
     Route: 030
     Dates: start: 20190517
  23. SIGNIFOR LAR [Suspect]
     Active Substance: PASIREOTIDE PAMOATE
     Indication: ACROMEGALY
     Dosage: 20 MG, UNK
     Route: 030
     Dates: start: 20170113
  24. SIGNIFOR LAR [Suspect]
     Active Substance: PASIREOTIDE PAMOATE
     Dosage: 20 MG, UNK
     Route: 030
     Dates: start: 20170217
  25. SIGNIFOR LAR [Suspect]
     Active Substance: PASIREOTIDE PAMOATE
     Dosage: 20 MG, UNK
     Route: 030
     Dates: start: 20170714
  26. SIGNIFOR LAR [Suspect]
     Active Substance: PASIREOTIDE PAMOATE
     Dosage: 20 MG, UNK
     Route: 030
     Dates: start: 20180511
  27. SIGNIFOR LAR [Suspect]
     Active Substance: PASIREOTIDE PAMOATE
     Dosage: 20 MG, UNK
     Route: 030
     Dates: start: 20191213
  28. SOMAVERT [Concomitant]
     Active Substance: PEGVISOMANT
     Indication: ACROMEGALY
     Dosage: 10 MG, UNK
     Route: 058
     Dates: end: 20180816
  29. PIOGLITAZONE. [Concomitant]
     Active Substance: PIOGLITAZONE
     Indication: DIABETES MELLITUS
     Dosage: 15 MG
     Route: 048
     Dates: start: 20180316, end: 20181115
  30. SIGNIFOR LAR [Suspect]
     Active Substance: PASIREOTIDE PAMOATE
     Dosage: 20 MG, UNK
     Route: 030
     Dates: start: 20170317
  31. SIGNIFOR LAR [Suspect]
     Active Substance: PASIREOTIDE PAMOATE
     Dosage: 20 MG, UNK
     Route: 030
     Dates: start: 20180119
  32. SIGNIFOR LAR [Suspect]
     Active Substance: PASIREOTIDE PAMOATE
     Dosage: 20 MG, UNK
     Route: 030
     Dates: start: 20180216
  33. SIGNIFOR LAR [Suspect]
     Active Substance: PASIREOTIDE PAMOATE
     Dosage: 20 MG, UNK
     Route: 030
     Dates: start: 20180615
  34. SIGNIFOR LAR [Suspect]
     Active Substance: PASIREOTIDE PAMOATE
     Dosage: 20 MG, UNK
     Route: 030
     Dates: start: 20181214
  35. SIGNIFOR LAR [Suspect]
     Active Substance: PASIREOTIDE PAMOATE
     Dosage: 20 MG, UNK
     Route: 030
     Dates: start: 20190614
  36. SIGNIFOR LAR [Suspect]
     Active Substance: PASIREOTIDE PAMOATE
     Dosage: 20 MG, UNK
     Route: 030
     Dates: start: 20190712
  37. SIGNIFOR LAR [Suspect]
     Active Substance: PASIREOTIDE PAMOATE
     Dosage: 20 MG, UNK
     Route: 030
     Dates: start: 20190816
  38. SOMAVERT [Concomitant]
     Active Substance: PEGVISOMANT
     Dosage: 15 MG
     Route: 058
     Dates: start: 20190817
  39. SIGNIFOR LAR [Suspect]
     Active Substance: PASIREOTIDE PAMOATE
     Dosage: 20 MG, UNK
     Route: 030
     Dates: start: 20170414
  40. SIGNIFOR LAR [Suspect]
     Active Substance: PASIREOTIDE PAMOATE
     Dosage: 20 MG, UNK
     Route: 030
     Dates: start: 20170512
  41. SIGNIFOR LAR [Suspect]
     Active Substance: PASIREOTIDE PAMOATE
     Dosage: 20 MG, UNK
     Route: 030
     Dates: start: 20170616
  42. SIGNIFOR LAR [Suspect]
     Active Substance: PASIREOTIDE PAMOATE
     Dosage: 20 MG, UNK
     Route: 030
     Dates: start: 20170818
  43. SIGNIFOR LAR [Suspect]
     Active Substance: PASIREOTIDE PAMOATE
     Dosage: 20 MG, UNK
     Route: 030
     Dates: start: 20180316
  44. SIGNIFOR LAR [Suspect]
     Active Substance: PASIREOTIDE PAMOATE
     Dosage: 20 MG, UNK
     Route: 030
     Dates: start: 20180713
  45. SIGNIFOR LAR [Suspect]
     Active Substance: PASIREOTIDE PAMOATE
     Dosage: 20 MG, UNK
     Route: 030
     Dates: start: 20181012
  46. SIGNIFOR LAR [Suspect]
     Active Substance: PASIREOTIDE PAMOATE
     Dosage: 20 MG, UNK
     Route: 030
     Dates: start: 20190913
  47. SIGNIFOR LAR [Suspect]
     Active Substance: PASIREOTIDE PAMOATE
     Dosage: 20 MG, UNK
     Route: 030
     Dates: start: 20191115
  48. PREMARIN [Concomitant]
     Active Substance: ESTROGENS, CONJUGATED
     Indication: ACROMEGALY
     Dosage: 1.25 MG, UNK
     Route: 048

REACTIONS (4)
  - Fatigue [Unknown]
  - Glycated albumin increased [Recovering/Resolving]
  - Diabetes mellitus [Recovering/Resolving]
  - Diabetes mellitus inadequate control [Recovering/Resolving]

NARRATIVE: CASE EVENT DATE: 20170217
